FAERS Safety Report 5374152-3 (Version None)
Quarter: 2007Q2

REPORT INFORMATION
  Report Type: 
  Country: None (occurrence: None)
  Receive Date: 20070627
  Receipt Date: 20061201
  Transmission Date: 20071010
  Serious: Yes (Death)
  Sender: FDA-Public Use
  Company Number: 473805

PATIENT
  Age: 58 Year
  Sex: Female

DRUGS (4)
  1. XELODA [Suspect]
     Indication: COLORECTAL CANCER METASTATIC
     Dosage: 2500 MG DAILY ORAL
     Route: 048
     Dates: start: 20061005
  2. ALPRAZOLAM [Concomitant]
  3. PAU D'ARCO (TABEBUIA AVELLANEDAE) [Concomitant]
  4. VITAMIN NOS (VITAMIN NOS) [Concomitant]

REACTIONS (1)
  - COLORECTAL CANCER METASTATIC [None]
